FAERS Safety Report 7627092-0 (Version None)
Quarter: 2011Q3

REPORT INFORMATION
  Report Type: 
  Country: None (occurrence: None)
  Receive Date: 20110721
  Receipt Date: 20110712
  Transmission Date: 20111222
  Serious: Yes (Other)
  Sender: FDA-Public Use
  Company Number: JP-ASTRAZENECA-2011SE42659

PATIENT
  Age: 28 Year
  Sex: Female

DRUGS (1)
  1. CANDESARTAN CILEXETIL [Suspect]
     Indication: RENAL DISORDER
     Route: 048

REACTIONS (2)
  - MATERNAL EXPOSURE DURING PREGNANCY [None]
  - OLIGOHYDRAMNIOS [None]
